FAERS Safety Report 14685516 (Version 1)
Quarter: 2018Q1

REPORT INFORMATION
  Report Type: Spontaneous
  Country: NL (occurrence: NL)
  Receive Date: 20180327
  Receipt Date: 20180327
  Transmission Date: 20180509
  Serious: Yes (Congenital Anomaly, Other)
  Sender: FDA-Public Use
  Company Number: NL-MYLANLABS-2018M1018318

PATIENT
  Sex: Female

DRUGS (1)
  1. DEXAMETHASONE. [Suspect]
     Active Substance: DEXAMETHASONE
     Indication: ADRENOGENITAL SYNDROME
     Dosage: MOTHER RECEIVED 1.5MG DAILY DOSE IN THREE DOSAGES (START DOSE 25 MICROG/KG/DAY); FROM THE SIXTH W...
     Route: 064

REACTIONS (4)
  - Cleft lip and palate [Recovered/Resolved]
  - Learning disorder [Unknown]
  - Memory impairment [Unknown]
  - Foetal exposure during pregnancy [Unknown]
